FAERS Safety Report 5075868-9 (Version None)
Quarter: 2006Q3

REPORT INFORMATION
  Report Type: 
  Country: None (occurrence: None)
  Receive Date: 20060803
  Receipt Date: 20060803
  Transmission Date: 20061208
  Serious: No
  Sender: FDA-Public Use
  Company Number: None

PATIENT
  Sex: Female

DRUGS (2)
  1. OXYCONTIN [Suspect]
     Indication: BACK DISORDER
     Dosage: 40 MG B.I.D.
  2. OXYCONTIN [Suspect]
     Indication: INTERVERTEBRAL DISC DEGENERATION
     Dosage: 40 MG B.I.D.

REACTIONS (4)
  - HEADACHE [None]
  - PAIN [None]
  - SWELLING FACE [None]
  - VISION BLURRED [None]
